FAERS Safety Report 9158037 (Version 1)
Quarter: 2013Q1

REPORT INFORMATION
  Report Type: Spontaneous
  Country: US (occurrence: None)
  Receive Date: 20130212
  Receipt Date: 20130212
  Transmission Date: 20140127
  Serious: Yes (Other)
  Sender: FDA-Public Use
  Company Number: 1106603

PATIENT
  Age: 48 Year
  Sex: Male

DRUGS (2)
  1. CHLORASEPTIC [Suspect]
     Dosage: SPRAYED ORALLY NOS
     Dates: start: 20121208
  2. UNKNOWN ANTIHYPERTENSIVE [Concomitant]

REACTIONS (5)
  - Dysphagia [None]
  - Dyspnoea [None]
  - Pharyngeal oedema [None]
  - Swollen tongue [None]
  - Throat tightness [None]
